FAERS Safety Report 5616126-0 (Version None)
Quarter: 2008Q1

REPORT INFORMATION
  Report Type: 
  Country: None (occurrence: None)
  Receive Date: 20080206
  Receipt Date: 20080125
  Transmission Date: 20080703
  Serious: Yes (Death, Life-Threatening, Other)
  Sender: FDA-Public Use
  Company Number: PT-PFIZER INC-2008008703

PATIENT
  Sex: Male

DRUGS (4)
  1. ZYVOX [Suspect]
  2. TAZOBACTAM [Concomitant]
  3. FLUCONAZOLE [Concomitant]
  4. OPIOIDS [Concomitant]

REACTIONS (4)
  - PYREXIA [None]
  - SEROTONIN SYNDROME [None]
  - SHOCK [None]
  - TACHYCARDIA [None]
